FAERS Safety Report 23517828 (Version 1)
Quarter: 2024Q1

REPORT INFORMATION
  Report Type: Spontaneous
  Country: US (occurrence: None)
  Receive Date: 20240212
  Receipt Date: 20240212
  Transmission Date: 20240410
  Serious: Yes (Hospitalization)
  Sender: FDA-Public Use
  Company Number: None

PATIENT
  Age: 26 Year
  Sex: Female

DRUGS (3)
  1. SPRAVATO [Suspect]
     Active Substance: ESKETAMINE
     Indication: Major depression
     Dosage: FREQUENCY : TWICE A WEEK;?
     Route: 045
     Dates: start: 20220809
  2. ONDANSETRON [Concomitant]
     Active Substance: ONDANSETRON
  3. REGLAN [Concomitant]
     Active Substance: METOCLOPRAMIDE HYDROCHLORIDE

REACTIONS (3)
  - Gastrointestinal motility disorder [None]
  - Depression [None]
  - Eating disorder [None]

NARRATIVE: CASE EVENT DATE: 20240205
